FAERS Safety Report 23211204 (Version 1)
Quarter: 2023Q4

REPORT INFORMATION
  Report Type: Spontaneous
  Country: US (occurrence: US)
  Receive Date: 20231121
  Receipt Date: 20231121
  Transmission Date: 20240110
  Serious: No
  Sender: FDA-Public Use
  Company Number: US-SA-SAC20231117000118

PATIENT
  Sex: Male
  Weight: 70.306 kg

DRUGS (1)
  1. DUPIXENT [Suspect]
     Active Substance: DUPILUMAB
     Dosage: 2 ML (1 PEN) EVERY 14 DAYS
     Route: 058

REACTIONS (1)
  - Injection site pain [Unknown]
